FAERS Safety Report 25798307 (Version 1)
Quarter: 2025Q3

REPORT INFORMATION
  Report Type: Spontaneous
  Country: US (occurrence: US)
  Receive Date: 20250912
  Receipt Date: 20250912
  Transmission Date: 20251021
  Serious: Yes (Disabling, Other)
  Sender: MERCK SHARP & DOHME LLC
  Company Number: US-009507513-2326370

PATIENT
  Sex: Female

DRUGS (2)
  1. KEYTRUDA [Suspect]
     Active Substance: PEMBROLIZUMAB
     Indication: Colorectal cancer
     Route: 050
     Dates: start: 2022
  2. KEYTRUDA [Suspect]
     Active Substance: PEMBROLIZUMAB
     Indication: Colorectal cancer
     Route: 050

REACTIONS (9)
  - Bedridden [Not Recovered/Not Resolved]
  - Pneumonitis [Unknown]
  - Blood calcium decreased [Unknown]
  - Mucosal inflammation [Unknown]
  - Palpitations [Unknown]
  - Stem cell therapy [Unknown]
  - Tooth disorder [Unknown]
  - Colitis ulcerative [Unknown]
  - Product use issue [Unknown]
